FAERS Safety Report 9716351 (Version 1)
Quarter: 2013Q4

REPORT INFORMATION
  Report Type: Spontaneous
  Country: US (occurrence: US)
  Receive Date: 20131127
  Receipt Date: 20131127
  Transmission Date: 20140711
  Serious: Yes (Other)
  Sender: FDA-Public Use
  Company Number: US-PFIZER INC-2013338276

PATIENT
  Age: 39 Year
  Sex: Female

DRUGS (1)
  1. IBUPROFEN [Suspect]
     Indication: UTERINE LEIOMYOMA
     Dosage: 800 MG, 3X/DAY
     Route: 065

REACTIONS (4)
  - Overdose [Unknown]
  - Off label use [Unknown]
  - Gastritis erosive [Unknown]
  - Small intestinal haemorrhage [Recovered/Resolved]
